FAERS Safety Report 7341431-X (Version None)
Quarter: 2011Q1

REPORT INFORMATION
  Report Type: 
  Country: None (occurrence: None)
  Receive Date: 20110309
  Receipt Date: 20110225
  Transmission Date: 20110831
  Serious: Yes (Hospitalization, Other)
  Sender: FDA-Public Use
  Company Number: US-ELI_LILLY_AND_COMPANY-US201002002446

PATIENT
  Sex: Female
  Weight: 60.317 kg

DRUGS (13)
  1. CRESTOR [Concomitant]
     Dosage: UNK, DAILY (1/D)
     Route: 065
  2. FOLIC ACID [Concomitant]
     Dosage: UNK, DAILY (1/D)
  3. METHOTREXATE [Concomitant]
  4. PLAVIX [Concomitant]
  5. ARAVA [Concomitant]
     Dosage: 10 MG, UNK
  6. CALCIUM [Concomitant]
     Indication: OSTEOPOROSIS
     Dosage: 1500 U, DAILY (1/D)
  7. ASPIRIN [Concomitant]
     Indication: ANTICOAGULANT THERAPY
     Dosage: 325 MG, DAILY (1/D)
  8. FORTEO [Suspect]
     Indication: OSTEOPOROSIS
     Dosage: 20 UG, DAILY (1/D)
     Route: 065
     Dates: start: 20091007, end: 20100203
  9. FORTEO [Suspect]
     Dosage: 20 UG, DAILY (1/D)
     Route: 065
     Dates: start: 20100205
  10. ATENOLOL [Concomitant]
     Indication: HYPERTENSION
     Dosage: UNK, DAILY (1/D)
  11. DIOVAN [Concomitant]
     Indication: HYPERTENSION
     Dosage: UNK, DAILY (1/D)
  12. TYLENOL EXTRA STRENGTH [Concomitant]
     Indication: MUSCULOSKELETAL STIFFNESS
     Dosage: UNK, EACH MORNING
  13. VITAMIN D [Concomitant]
     Dosage: 4000 U, UNK

REACTIONS (14)
  - ATRIAL FIBRILLATION [None]
  - THYROID DISORDER [None]
  - CHEST DISCOMFORT [None]
  - WEIGHT DECREASED [None]
  - PARATHYROID DISORDER [None]
  - CORONARY ARTERY OCCLUSION [None]
  - BLOOD CALCIUM DECREASED [None]
  - FATIGUE [None]
  - DYSPHONIA [None]
  - ASTHENIA [None]
  - TREMOR [None]
  - BLOOD MAGNESIUM DECREASED [None]
  - GOITRE [None]
  - DRUG DOSE OMISSION [None]
